FAERS Safety Report 10258422 (Version 1)
Quarter: 2014Q2

REPORT INFORMATION
  Report Type: Spontaneous
  Country: FR (occurrence: FR)
  Receive Date: 20140625
  Receipt Date: 20140625
  Transmission Date: 20141212
  Serious: Yes (Life-Threatening, Hospitalization)
  Sender: FDA-Public Use
  Company Number: FR-PFIZER INC-2014173480

PATIENT
  Age: 45 Year
  Sex: Female

DRUGS (8)
  1. RAMIPRIL [Suspect]
     Indication: SUICIDE ATTEMPT
     Dosage: 60 DF, UNK
     Route: 048
     Dates: start: 20140414, end: 20140414
  2. PARACETAMOL [Suspect]
     Indication: SUICIDE ATTEMPT
     Dosage: 4 DF, SINGLE
     Route: 065
     Dates: start: 20140414, end: 20140414
  3. DUOPLAVIN [Suspect]
     Indication: SUICIDE ATTEMPT
     Dosage: 25 DF, SINGLE
     Route: 048
     Dates: start: 20140414, end: 20140414
  4. ISOPTINE [Suspect]
     Indication: SUICIDE ATTEMPT
     Dosage: 30 DF, SINGLE
     Route: 065
     Dates: start: 20140414, end: 20140414
  5. CRESTOR [Suspect]
     Indication: SUICIDE ATTEMPT
     Dosage: 30 DF, SINGLE
     Route: 065
     Dates: start: 20140414, end: 20140414
  6. ZYLORIC [Suspect]
     Indication: SUICIDE ATTEMPT
     Dosage: 5 DF, SINGLE
     Route: 065
     Dates: start: 20140414, end: 20140414
  7. INEXIUM [Suspect]
     Dosage: 15 DF, SINGLE
     Route: 065
     Dates: start: 20140414, end: 20140414
  8. STILNOX [Concomitant]
     Dosage: UNK

REACTIONS (5)
  - Overdose [Unknown]
  - Suicide attempt [Unknown]
  - Toxicity to various agents [Recovered/Resolved]
  - Cardiogenic shock [Recovered/Resolved]
  - Shock [Recovered/Resolved]
